FAERS Safety Report 8185209-6 (Version None)
Quarter: 2012Q1

REPORT INFORMATION
  Report Type: 
  Country: None (occurrence: None)
  Receive Date: 20120305
  Receipt Date: 20120223
  Transmission Date: 20120608
  Serious: Yes (Other)
  Sender: FDA-Public Use
  Company Number: PHFR2012GB001353

PATIENT
  Sex: Male

DRUGS (5)
  1. GABITRIL [Concomitant]
     Dosage: UNK UKN, UNK
  2. FRISIUM [Concomitant]
     Dosage: UNK UKN, UNK
  3. TEGRETOL-XR [Suspect]
     Dosage: 400 MG, UNK
  4. ZEBINIX [Concomitant]
     Dosage: UNK UKN, UNK
  5. REMION [Concomitant]
     Dosage: UNK UKN, UNK

REACTIONS (2)
  - FALL [None]
  - LOSS OF CONSCIOUSNESS [None]
